FAERS Safety Report 6668306-3 (Version None)
Quarter: 2010Q2

REPORT INFORMATION
  Report Type: 
  Country: None (occurrence: None)
  Receive Date: 20100401
  Receipt Date: 20100319
  Transmission Date: 20101027
  Serious: Yes (Other)
  Sender: FDA-Public Use
  Company Number: 1000012693

PATIENT
  Age: 19 Year
  Sex: Male

DRUGS (1)
  1. CITALOPRAM HYDROBROMIDE [Suspect]
     Dosage: 20 MG, ORAL
     Route: 048
     Dates: start: 20100101

REACTIONS (2)
  - RESTLESSNESS [None]
  - SLEEP DISORDER [None]
